FAERS Safety Report 8625177 (Version 2)
Quarter: 2013Q4

REPORT INFORMATION
  Report Type: Spontaneous
  Country: US (occurrence: US)
  Receive Date: 20120620
  Receipt Date: 20131008
  Transmission Date: 20140711
  Serious: Yes (Other)
  Sender: FDA-Public Use
  Company Number: US-ROCHE-792166

PATIENT
  Age: 16 Year
  Sex: Male
  Weight: 86.26 kg

DRUGS (2)
  1. ACCUTANE [Suspect]
     Indication: ACNE
     Dosage: DOSE: 40 MG DAILY IN AM AND 20 MG DAILY IN PM.
     Route: 048
     Dates: start: 199709, end: 199711
  2. ACCUTANE [Suspect]
     Route: 065
     Dates: start: 1997, end: 1998

REACTIONS (11)
  - Colitis ulcerative [Unknown]
  - Crohn^s disease [Unknown]
  - Inflammatory bowel disease [Unknown]
  - Emotional distress [Unknown]
  - Intestinal obstruction [Unknown]
  - Abscess [Unknown]
  - Anal fissure [Unknown]
  - Colonic fistula [Unknown]
  - Deep vein thrombosis [Recovered/Resolved]
  - Dry skin [Unknown]
  - Osteoarthritis [Unknown]
